FAERS Safety Report 6262182-9 (Version None)
Quarter: 2009Q3

REPORT INFORMATION
  Report Type: 
  Country: None (occurrence: None)
  Receive Date: 20090708
  Receipt Date: 20090708
  Transmission Date: 20100115
  Serious: No
  Sender: FDA-Public Use
  Company Number: None

PATIENT
  Age: 54 Year
  Sex: Female
  Weight: 74.8435 kg

DRUGS (1)
  1. NASONEX [Suspect]
     Dosage: 2 SPAYS 1 X DAY NOSTRILS
     Route: 045
     Dates: start: 20090501, end: 20090503

REACTIONS (9)
  - AGEUSIA [None]
  - ANOSMIA [None]
  - CONDITION AGGRAVATED [None]
  - DYSPNOEA [None]
  - EAR PAIN [None]
  - HEADACHE [None]
  - INFLUENZA [None]
  - NASAL DISCOMFORT [None]
  - SINUS CONGESTION [None]
